FAERS Safety Report 8249953-4 (Version None)
Quarter: 2012Q2

REPORT INFORMATION
  Report Type: 
  Country: None (occurrence: None)
  Receive Date: 20120402
  Receipt Date: 20120322
  Transmission Date: 20120825
  Serious: Yes (Disabling, Other)
  Sender: FDA-Public Use
  Company Number: AU-JNJFOC-20120306748

PATIENT
  Sex: Female
  Weight: 72 kg

DRUGS (1)
  1. REMICADE [Suspect]
     Indication: CROHN'S DISEASE
     Dosage: CEASED APPROXIMATELY 6 MONTHS AGO. HAD BEEN ON REMICADE FOR APPROX 6-8
     Route: 042
     Dates: start: 20101208, end: 20110428

REACTIONS (1)
  - RHEUMATOID ARTHRITIS [None]
